FAERS Safety Report 12596852 (Version 1)
Quarter: 2016Q3

REPORT INFORMATION
  Report Type: Spontaneous
  Country: GB (occurrence: GB)
  Receive Date: 20160727
  Receipt Date: 20160727
  Transmission Date: 20161109
  Serious: Yes (Other)
  Sender: FDA-Public Use
  Company Number: GB-AUROBINDO-AUR-APL-2016-09355

PATIENT
  Age: 41 Year
  Sex: Female
  Weight: 72 kg

DRUGS (5)
  1. MIRTAZAPINE ORODISPERSABLE TABLET [Suspect]
     Active Substance: MIRTAZAPINE
     Indication: DEPRESSION
     Dosage: IT WAS 15 AND 30MG ORAL MIRTAZAPINE IN PAST
     Route: 048
  2. MIRTAZAPINE ORODISPERSABLE TABLET [Suspect]
     Active Substance: MIRTAZAPINE
     Dosage: 45 UNK, UNK
     Route: 065
  3. MIRTAZAPINE ORODISPERSABLE TABLET [Suspect]
     Active Substance: MIRTAZAPINE
     Dosage: IT WAS 15 AND 30MG ORAL MIRTAZAPINE IN PAST
     Route: 048
  4. NALTREXONE [Concomitant]
     Active Substance: NALTREXONE
     Indication: PRODUCT USED FOR UNKNOWN INDICATION
     Route: 065
  5. SERC                               /00034201/ [Concomitant]
     Indication: MENIERE^S DISEASE
     Route: 065

REACTIONS (12)
  - Depressive symptom [Not Recovered/Not Resolved]
  - Fatigue [Not Recovered/Not Resolved]
  - Feeling abnormal [Not Recovered/Not Resolved]
  - Pruritus [Unknown]
  - Suicidal ideation [Unknown]
  - Back pain [Not Recovered/Not Resolved]
  - Dyspnoea [Not Recovered/Not Resolved]
  - Thyroglobulin increased [Unknown]
  - Memory impairment [Not Recovered/Not Resolved]
  - Confusional state [Not Recovered/Not Resolved]
  - Pruritus generalised [Not Recovered/Not Resolved]
  - Bone pain [Not Recovered/Not Resolved]

NARRATIVE: CASE EVENT DATE: 20160630
